FAERS Safety Report 22737241 (Version 3)
Quarter: 2023Q4

REPORT INFORMATION
  Report Type: Spontaneous
  Country: US (occurrence: US)
  Receive Date: 20230721
  Receipt Date: 20231116
  Transmission Date: 20240110
  Serious: Yes (Death, Other)
  Sender: FDA-Public Use
  Company Number: US-PFIZER INC-202300254796

PATIENT
  Sex: Male

DRUGS (1)
  1. VYNDAMAX [Suspect]
     Active Substance: TAFAMIDIS
     Dosage: UNK
     Dates: start: 20230715

REACTIONS (8)
  - Death [Fatal]
  - Renal pain [Unknown]
  - Back pain [Unknown]
  - Pain [Unknown]
  - Gait inability [Unknown]
  - Dysstasia [Unknown]
  - Loss of personal independence in daily activities [Unknown]
  - Condition aggravated [Unknown]

NARRATIVE: CASE EVENT DATE: 20230715
